FAERS Safety Report 4922602-6 (Version None)
Quarter: 2006Q1

REPORT INFORMATION
  Report Type: 
  Country: None (occurrence: None)
  Receive Date: 20060224
  Receipt Date: 20060217
  Transmission Date: 20060701
  Serious: Yes (Life-Threatening)
  Sender: FDA-Public Use
  Company Number: GR-GLAXOSMITHKLINE-B0413288A

PATIENT
  Age: 78 Year
  Sex: Male

DRUGS (1)
  1. TIMENTIN [Suspect]
     Indication: PROPHYLAXIS
     Dosage: 5.2U THREE TIMES PER DAY
     Route: 042
     Dates: start: 20060216, end: 20060217

REACTIONS (3)
  - DYSPHONIA [None]
  - DYSPNOEA [None]
  - LARYNGEAL OEDEMA [None]
